FAERS Safety Report 4591053-9 (Version None)
Quarter: 2005Q1

REPORT INFORMATION
  Report Type: 
  Country: None (occurrence: None)
  Receive Date: 20050222
  Receipt Date: 20050222
  Transmission Date: 20050727
  Serious: Yes (Other)
  Sender: FDA-Public Use
  Company Number: None

PATIENT
  Age: 40 Year
  Sex: Female
  Weight: 60.782 kg

DRUGS (2)
  1. LEVAQUIN [Suspect]
     Indication: SINUSITIS
     Dosage: 750 MGG   DAILY  ORAL
     Route: 048
     Dates: start: 20050204, end: 20050212
  2. LEVAQUIN [Suspect]
     Indication: STAPHYLOCOCCAL INFECTION
     Dosage: 750 MGG   DAILY  ORAL
     Route: 048
     Dates: start: 20050204, end: 20050212

REACTIONS (4)
  - FEELING ABNORMAL [None]
  - NECK PAIN [None]
  - OEDEMA [None]
  - TENDONITIS [None]
